FAERS Safety Report 11145760 (Version 1)
Quarter: 2015Q2

REPORT INFORMATION
  Report Type: Spontaneous
  Country: GB (occurrence: None)
  Receive Date: 20150526
  Receipt Date: 20150526
  Transmission Date: 20150821
  Serious: Yes (Other)
  Sender: FDA-Public Use
  Company Number: FK201502351

PATIENT
  Age: 48 Year
  Sex: Female
  Weight: 53.07 kg

DRUGS (1)
  1. METHOTREXATE (MANUFACTURER UNKNOWN) (METHOTREXATE) (METHOTREXATE) [Suspect]
     Active Substance: METHOTREXATE
     Indication: SERONEGATIVE ARTHRITIS
     Route: 048
     Dates: start: 20140310, end: 20150311

REACTIONS (2)
  - Menopause [None]
  - Blood oestrogen decreased [None]

NARRATIVE: CASE EVENT DATE: 20150401
